FAERS Safety Report 8822488 (Version 2)
Quarter: 2013Q4

REPORT INFORMATION
  Report Type: Spontaneous
  Country: CH (occurrence: CH)
  Receive Date: 20121003
  Receipt Date: 20131231
  Transmission Date: 20140711
  Serious: Yes (Other)
  Sender: FDA-Public Use
  Company Number: CH-ELI_LILLY_AND_COMPANY-CH201209006109

PATIENT
  Age: 39 Year
  Sex: Female

DRUGS (3)
  1. CYMBALTA [Suspect]
     Indication: DEPRESSION
     Dosage: 30 MG, QD
     Route: 065
  2. XANAX [Suspect]
     Indication: DEPRESSION
     Dosage: 4 MG, QD
     Route: 065
  3. XANAX [Suspect]
     Dosage: 2 MG, QD

REACTIONS (1)
  - Exposure during pregnancy [Unknown]
